FAERS Safety Report 20127859 (Version 1)
Quarter: 2021Q4

REPORT INFORMATION
  Report Type: Spontaneous
  Country: CA (occurrence: CA)
  Receive Date: 20211129
  Receipt Date: 20211129
  Transmission Date: 20220303
  Serious: Yes (Hospitalization, Other)
  Sender: FDA-Public Use
  Company Number: CA-009507513-2008CAN012251

PATIENT
  Age: 68 Year
  Sex: Female
  Weight: 72 kg

DRUGS (4)
  1. CUBICIN [Suspect]
     Active Substance: DAPTOMYCIN
     Indication: Wound infection
     Dosage: 720 MG, 1 EVERY 1 DAY
     Route: 041
  2. CUBICIN [Suspect]
     Active Substance: DAPTOMYCIN
     Indication: Device related infection
     Dosage: 700 MG, UNK
     Route: 041
  3. CUBICIN [Suspect]
     Active Substance: DAPTOMYCIN
     Indication: Corynebacterium infection
     Dosage: 600 MILLIGRAM, 1 EVERY 2 DAYS
     Route: 042
  4. CIPROFLOXACIN [Concomitant]
     Active Substance: CIPROFLOXACIN
     Dosage: UNK

REACTIONS (4)
  - Eosinophilic pneumonia [Recovering/Resolving]
  - Lung opacity [Recovering/Resolving]
  - Organising pneumonia [Recovering/Resolving]
  - Pyrexia [Recovering/Resolving]
